FAERS Safety Report 8618782-1 (Version None)
Quarter: 2012Q3

REPORT INFORMATION
  Report Type: 
  Country: None (occurrence: None)
  Receive Date: 20120824
  Receipt Date: 20120813
  Transmission Date: 20120928
  Serious: Yes (Other)
  Sender: FDA-Public Use
  Company Number: US-JNJFOC-20120711939

PATIENT
  Sex: Male
  Weight: 86.18 kg

DRUGS (1)
  1. RISPERDAL CONSTA [Suspect]
     Indication: SCHIZOPHRENIA
     Route: 042
     Dates: start: 20120514, end: 20120627

REACTIONS (10)
  - HEART RATE INCREASED [None]
  - SOMNOLENCE [None]
  - PALPITATIONS [None]
  - RHINITIS [None]
  - NEUROLEPTIC MALIGNANT SYNDROME [None]
  - CONFUSIONAL STATE [None]
  - EXTRAPYRAMIDAL DISORDER [None]
  - INCORRECT ROUTE OF DRUG ADMINISTRATION [None]
  - SEDATION [None]
  - MALAISE [None]
